FAERS Safety Report 18255363 (Version 4)
Quarter: 2020Q4

REPORT INFORMATION
  Report Type: Spontaneous
  Country: PL (occurrence: PL)
  Receive Date: 20200910
  Receipt Date: 20201026
  Transmission Date: 20210113
  Serious: Yes (Hospitalization, Other)
  Sender: FDA-Public Use
  Company Number: PL-B.I. PHARMACEUTICALS,INC./RIDGEFIELD-2020-BI-043136

PATIENT
  Age: 82 Year
  Weight: 107 kg

DRUGS (7)
  1. DIUVER [Concomitant]
     Active Substance: TORSEMIDE
     Indication: DEHYDRATION
     Route: 048
  2. RYTMONORM [Concomitant]
     Active Substance: PROPAFENONE
     Indication: ARRHYTHMIA
     Route: 048
  3. PRADAXA [Suspect]
     Active Substance: DABIGATRAN ETEXILATE MESYLATE
     Indication: ATRIAL FIBRILLATION
     Dosage: ON 28TH DEC 2016, DOSE WAS INCREASED FROM 110 MG TO 150 MG.?ON 15TH AUG 2020, DRUG WAS WITHDRAWN. ?O
     Route: 048
     Dates: start: 20150327, end: 20161227
  4. PRADAXA [Suspect]
     Active Substance: DABIGATRAN ETEXILATE MESYLATE
     Route: 048
     Dates: start: 20161228, end: 20200815
  5. PRADAXA [Suspect]
     Active Substance: DABIGATRAN ETEXILATE MESYLATE
     Route: 048
     Dates: start: 20201003
  6. BETO ZK [Concomitant]
     Active Substance: METOPROLOL SUCCINATE
     Indication: ARRHYTHMIA
     Route: 048
  7. LORISTA [Concomitant]
     Active Substance: LOSARTAN POTASSIUM
     Indication: HYPERTENSION
     Route: 048

REACTIONS (4)
  - Endometrial cancer [Unknown]
  - Tumour invasion [Unknown]
  - Contraindicated product administered [Unknown]
  - Haemorrhage [Recovered/Resolved]

NARRATIVE: CASE EVENT DATE: 20200813
